FAERS Safety Report 9471518 (Version 1)
Quarter: 2013Q3

REPORT INFORMATION
  Report Type: Spontaneous
  Country: US (occurrence: US)
  Receive Date: 20130822
  Receipt Date: 20130822
  Transmission Date: 20140515
  Serious: Yes (Other)
  Sender: FDA-Public Use
  Company Number: US-JNJFOC-20130812649

PATIENT
  Sex: 0

DRUGS (3)
  1. PARACETAMOL [Suspect]
  2. PARACETAMOL [Suspect]
     Indication: ANTITUSSIVE THERAPY
  3. CODEINE PHOSPHATE [Concomitant]
     Indication: ANTITUSSIVE THERAPY

REACTIONS (4)
  - Respiratory depression [Unknown]
  - Dependence [Unknown]
  - Nausea [Unknown]
  - Constipation [Unknown]
